FAERS Safety Report 12213525 (Version 1)
Quarter: 2016Q1

REPORT INFORMATION
  Report Type: Report from Study
  Country: GB (occurrence: GB)
  Receive Date: 20160328
  Receipt Date: 20160328
  Transmission Date: 20160526
  Serious: Yes (Other)
  Sender: FDA-Public Use
  Company Number: GB-ELI_LILLY_AND_COMPANY-GB201603004716

PATIENT
  Age: 84 Year
  Sex: Female

DRUGS (2)
  1. FORSTEO [Suspect]
     Active Substance: TERIPARATIDE
     Indication: PRODUCT USED FOR UNKNOWN INDICATION
     Dosage: UNK UNK, UNKNOWN
     Route: 065
     Dates: start: 20160311, end: 20160311
  2. MORPHINE [Concomitant]
     Active Substance: MORPHINE
     Dosage: UNK, UNKNOWN
     Route: 065

REACTIONS (4)
  - Blood pressure decreased [Unknown]
  - Fall [Unknown]
  - Loss of consciousness [Unknown]
  - Limb discomfort [Unknown]

NARRATIVE: CASE EVENT DATE: 20160311
